FAERS Safety Report 19380729 (Version 1)
Quarter: 2021Q2

REPORT INFORMATION
  Report Type: Spontaneous
  Country: US (occurrence: US)
  Receive Date: 20210607
  Receipt Date: 20210607
  Transmission Date: 20210717
  Serious: No
  Sender: FDA-Public Use
  Company Number: US-BTGSP-US-BTGSP-20-0627

PATIENT
  Age: 80 Year
  Sex: Female
  Weight: 94.2 kg

DRUGS (2)
  1. VORAXAZE [Suspect]
     Active Substance: GLUCARPIDASE
     Indication: TOXICITY TO VARIOUS AGENTS
     Dosage: 1 VIAL
     Route: 065
     Dates: start: 20200530, end: 20200530
  2. LEUCOVORIN. [Concomitant]
     Active Substance: LEUCOVORIN
     Indication: TOXICITY TO VARIOUS AGENTS
     Dosage: 200 MG EVERY 6 HOURS (Q6H), GIVEN 2.5 HOURS BEFORE AND 5 HOURS AFTER VORAXAZE
     Route: 042

REACTIONS (4)
  - No adverse event [Unknown]
  - Underdose [Recovering/Resolving]
  - Laboratory test interference [Unknown]
  - Off label use [Recovering/Resolving]

NARRATIVE: CASE EVENT DATE: 20200530
